FAERS Safety Report 18467324 (Version 1)
Quarter: 2020Q4

REPORT INFORMATION
  Report Type: Spontaneous
  Country: US (occurrence: US)
  Receive Date: 20201104
  Receipt Date: 20201104
  Transmission Date: 20210114
  Serious: Yes (Death)
  Sender: FDA-Public Use
  Company Number: None

PATIENT
  Age: 0 Day
  Sex: Female
  Weight: 78.47 kg

DRUGS (2)
  1. REMDESIVIR. [Suspect]
     Active Substance: REMDESIVIR
  2. N/A [Concomitant]
     Active Substance: UNSPECIFIED INGREDIENT

REACTIONS (6)
  - Tachypnoea [None]
  - General physical health deterioration [None]
  - Coronary artery occlusion [None]
  - Hypoxia [None]
  - Myocardial necrosis marker increased [None]
  - Haemodialysis [None]

NARRATIVE: CASE EVENT DATE: 20201021
